FAERS Safety Report 23638017 (Version 1)
Quarter: 2024Q1

REPORT INFORMATION
  Report Type: Report from Study
  Country: US (occurrence: None)
  Receive Date: 20240315
  Receipt Date: 20240315
  Transmission Date: 20240409
  Serious: Yes (Hospitalization, Other)
  Sender: FDA-Public Use
  Company Number: 2024A059177

PATIENT
  Sex: Female

DRUGS (1)
  1. SYMBICORT [Suspect]
     Active Substance: BUDESONIDE\FORMOTEROL FUMARATE DIHYDRATE
     Indication: Asthma
     Dosage: UNKNOWN UNKNOWN
     Route: 055

REACTIONS (11)
  - Post procedural complication [Unknown]
  - Gait disturbance [Unknown]
  - Nervous system disorder [Unknown]
  - Spinal disorder [Unknown]
  - Neoplasm malignant [Unknown]
  - Musculoskeletal disorder [Unknown]
  - Road traffic accident [Unknown]
  - Depression [Unknown]
  - Product substitution issue [Unknown]
  - Insurance issue [Unknown]
  - Emotional disorder [Unknown]
